FAERS Safety Report 10187540 (Version 2)
Quarter: 2016Q2

REPORT INFORMATION
  Report Type: Spontaneous
  Country: US (occurrence: US)
  Receive Date: 20140522
  Receipt Date: 20160524
  Transmission Date: 20160815
  Serious: No
  Sender: FDA-Public Use
  Company Number: US-SANOFI-AVENTIS-2013SA081099

PATIENT
  Age: 75 Year
  Sex: Male

DRUGS (4)
  1. METFORMIN [Suspect]
     Active Substance: METFORMIN HYDROCHLORIDE
     Route: 065
  2. LANTUS SOLOSTAR [Suspect]
     Active Substance: INSULIN GLARGINE
     Indication: TYPE 2 DIABETES MELLITUS
     Dosage: PRODUCT STARTED 5-6 YEARS AGO. DOSE:27 UNIT(S)
     Route: 051
  3. GLIPIZIDE. [Suspect]
     Active Substance: GLIPIZIDE
     Route: 065
  4. SOLOSTAR [Suspect]
     Active Substance: DEVICE
     Indication: TYPE 2 DIABETES MELLITUS
     Dosage: PRODUCT STARTED 5-6 YEARS AGO.

REACTIONS (6)
  - Blood glucose fluctuation [Unknown]
  - Vision blurred [Unknown]
  - Blood glucose abnormal [Unknown]
  - Blood glucose decreased [Unknown]
  - Nausea [Unknown]
  - Injection site pain [Unknown]
